FAERS Safety Report 5767352-1 (Version None)
Quarter: 2008Q2

REPORT INFORMATION
  Report Type: 
  Country: None (occurrence: None)
  Receive Date: 20080612
  Receipt Date: 20080606
  Transmission Date: 20081010
  Serious: Yes (Other)
  Sender: FDA-Public Use
  Company Number: A0731759A

PATIENT
  Age: 17 Year
  Sex: Male

DRUGS (3)
  1. LOVAZA [Suspect]
     Dosage: 2G TWICE PER DAY
     Route: 048
     Dates: start: 20071201
  2. MULTIPLE MEDICATION [Concomitant]
  3. KINOX [Concomitant]

REACTIONS (2)
  - BLOOD PHOSPHORUS INCREASED [None]
  - RENAL FAILURE [None]
